FAERS Safety Report 4982450-8 (Version None)
Quarter: 2006Q2

REPORT INFORMATION
  Report Type: 
  Country: None (occurrence: None)
  Receive Date: 20060421
  Receipt Date: 20060408
  Transmission Date: 20061013
  Serious: No
  Sender: FDA-Public Use
  Company Number: RS005930-USA

PATIENT
  Age: 28 Year
  Sex: Male
  Weight: 95 kg

DRUGS (2)
  1. ACIPHEX [Suspect]
     Indication: GASTROOESOPHAGEAL REFLUX DISEASE
     Dosage: 20 MG, UNKNOWN, ORAL
     Route: 048
     Dates: end: 20060408
  2. ALLEGRA D (ALLEGRA-D) [Concomitant]

REACTIONS (4)
  - CHEST DISCOMFORT [None]
  - DYSPNOEA [None]
  - HYPOAESTHESIA [None]
  - PARAESTHESIA [None]
